FAERS Safety Report 25456752 (Version 2)
Quarter: 2025Q2

REPORT INFORMATION
  Report Type: Spontaneous
  Country: US (occurrence: US)
  Receive Date: 20250619
  Receipt Date: 20250625
  Transmission Date: 20250716
  Serious: No
  Sender: SUNOVION
  Company Number: US-SMPA-2025SPA006672AA

PATIENT

DRUGS (3)
  1. ORGOVYX [Suspect]
     Active Substance: RELUGOLIX
     Indication: Product used for unknown indication
     Route: 048
  2. ABIRATERONE [Concomitant]
     Active Substance: ABIRATERONE
     Route: 065
  3. RANEXA [Concomitant]
     Active Substance: RANOLAZINE
     Route: 065

REACTIONS (1)
  - Blood testosterone abnormal [Unknown]
